FAERS Safety Report 23131552 (Version 2)
Quarter: 2023Q4

REPORT INFORMATION
  Report Type: Report from Study
  Country: IT (occurrence: IT)
  Receive Date: 20231031
  Receipt Date: 20231113
  Transmission Date: 20240110
  Serious: Yes (Hospitalization)
  Sender: FDA-Public Use
  Company Number: IT-Eisai Medical Research-EC-2023-145210

PATIENT
  Age: 72 Year
  Sex: Female
  Weight: 88 kg

DRUGS (17)
  1. LENVATINIB [Suspect]
     Active Substance: LENVATINIB
     Indication: Clear cell renal cell carcinoma
     Route: 048
     Dates: start: 20230322, end: 20230704
  2. LENVATINIB [Suspect]
     Active Substance: LENVATINIB
     Route: 048
     Dates: start: 20230801, end: 20230809
  3. PEMBROLIZUMAB [Suspect]
     Active Substance: PEMBROLIZUMAB
     Indication: Clear cell renal cell carcinoma
     Route: 041
     Dates: start: 20230322, end: 20230614
  4. PEMBROLIZUMAB [Suspect]
     Active Substance: PEMBROLIZUMAB
     Route: 041
     Dates: start: 20230801, end: 20230801
  5. ENOXAPARIN SODIUM [Concomitant]
     Active Substance: ENOXAPARIN SODIUM
     Dates: start: 201301
  6. DULEX [DULOXETINE HYDROCHLORIDE] [Concomitant]
     Dates: start: 201301
  7. BUPRENORPHINE [Concomitant]
     Active Substance: BUPRENORPHINE
     Dates: start: 201301
  8. TRULICITY [Concomitant]
     Active Substance: DULAGLUTIDE
     Dates: start: 201301
  9. HYDROCHLOROTHIAZIDE\VALSARTAN [Concomitant]
     Active Substance: HYDROCHLOROTHIAZIDE\VALSARTAN
     Dates: start: 20230517
  10. AMLODIPINE [Concomitant]
     Active Substance: AMLODIPINE BESYLATE
     Dates: start: 20230517
  11. MYCOSTATIN [Concomitant]
     Active Substance: NYSTATIN
     Dates: start: 20230426
  12. LEVOTHYROXINE SODIUM [Concomitant]
     Active Substance: LEVOTHYROXINE SODIUM
     Dates: start: 202301
  13. SOTALOL [Concomitant]
     Active Substance: SOTALOL
     Dates: start: 201301
  14. BISOPROLOL [Concomitant]
     Active Substance: BISOPROLOL\BISOPROLOL FUMARATE
     Dates: start: 201301
  15. LOSARTAN [Concomitant]
     Active Substance: LOSARTAN
     Dates: start: 201301
  16. SIMVASTATIN [Concomitant]
     Active Substance: SIMVASTATIN
     Dates: start: 201301
  17. LYRICA [Concomitant]
     Active Substance: PREGABALIN
     Dates: start: 201301

REACTIONS (1)
  - Acute kidney injury [Recovered/Resolved]

NARRATIVE: CASE EVENT DATE: 20230705
